FAERS Safety Report 10217256 (Version 2)
Quarter: 2014Q2

REPORT INFORMATION
  Report Type: Report from Study
  Country: JP (occurrence: JP)
  Receive Date: 20140604
  Receipt Date: 20140623
  Transmission Date: 20141212
  Serious: Yes (Hospitalization)
  Sender: FDA-Public Use
  Company Number: PHHY2013JP157280

PATIENT
  Age: 80 Year
  Sex: Male

DRUGS (9)
  1. TASIGNA [Suspect]
     Indication: CHRONIC MYELOID LEUKAEMIA
     Dosage: 400 MG, BID
     Route: 048
     Dates: start: 20120614, end: 20130720
  2. TASIGNA [Suspect]
     Dosage: 400 MG, BID
     Route: 048
     Dates: start: 20130820, end: 20140114
  3. TASIGNA [Suspect]
     Dosage: 200 MG, BID
     Route: 048
     Dates: start: 20140114, end: 20140313
  4. ZYLORIC [Suspect]
     Dosage: 100 MG, DAILY
     Route: 048
  5. CIBENOL [Suspect]
  6. TAKEPRON [Concomitant]
     Dosage: 15 MG, QD
     Route: 048
  7. XYZAL [Concomitant]
     Indication: DYSPNOEA
     Dates: end: 20131227
  8. ALLELOCK [Concomitant]
     Dates: end: 20131227
  9. NEOMALLERMIN [Concomitant]
     Dates: end: 20131227

REACTIONS (4)
  - Pneumonia [Recovered/Resolved]
  - Dyspnoea [Unknown]
  - Pyrexia [Unknown]
  - Rash [Recovered/Resolved]
